FAERS Safety Report 6604527-3 (Version None)
Quarter: 2010Q1

REPORT INFORMATION
  Report Type: 
  Country: None (occurrence: None)
  Receive Date: 20100226
  Receipt Date: 20091112
  Transmission Date: 20100710
  Serious: No
  Sender: FDA-Public Use
  Company Number: A0816773A

PATIENT
  Age: 40 Year
  Sex: Female

DRUGS (7)
  1. LAMICTAL CD [Suspect]
     Indication: BIPOLAR DISORDER
     Dosage: 100MG PER DAY
     Route: 048
     Dates: start: 20091109
  2. SEROQUEL [Concomitant]
  3. KLONOPIN [Concomitant]
  4. MELOXICAM [Concomitant]
  5. PROZAC [Concomitant]
  6. CYCLOBENZAPRINE [Concomitant]
  7. METHADONE HCL [Concomitant]

REACTIONS (3)
  - CRYING [None]
  - INSOMNIA [None]
  - PANIC ATTACK [None]
